FAERS Safety Report 8134974-2 (Version None)
Quarter: 2012Q1

REPORT INFORMATION
  Report Type: 
  Country: None (occurrence: None)
  Receive Date: 20120214
  Receipt Date: 20120208
  Transmission Date: 20120608
  Serious: Yes (Hospitalization)
  Sender: FDA-Public Use
  Company Number: JP-B.I. PHARMACEUTICALS,INC./RIDGEFIELD-2012-BP-00436NB

PATIENT
  Age: 74 Year
  Sex: Female

DRUGS (8)
  1. SOLMIRAN [Concomitant]
     Indication: DYSLIPIDAEMIA
     Route: 048
  2. PLAVIX [Concomitant]
     Indication: CEREBRAL THROMBOSIS
     Dosage: 75 MG
     Route: 048
     Dates: end: 20120106
  3. FUROSEMIDE [Concomitant]
     Indication: CARDIAC FAILURE
     Dosage: 20 MG
     Route: 048
  4. DIAZEPAM [Concomitant]
     Indication: ANXIETY
     Dosage: 2 MG
     Route: 048
  5. ZETIA [Concomitant]
     Indication: DYSLIPIDAEMIA
     Dosage: 10 MG
     Route: 048
  6. ENALAPRIL MALEATE [Concomitant]
     Indication: CARDIAC FAILURE
     Dosage: 5 MG
     Route: 048
  7. PRADAXA [Suspect]
     Indication: ATRIAL FIBRILLATION
     Dosage: 220 MG
     Route: 048
  8. DIGOXIN [Concomitant]
     Indication: HEART RATE IRREGULAR
     Dosage: 0.125 MG
     Route: 048

REACTIONS (3)
  - DRUG INEFFECTIVE [None]
  - THROMBOTIC CEREBRAL INFARCTION [None]
  - CEREBRAL INFARCTION [None]
